FAERS Safety Report 5346497-4 (Version None)
Quarter: 2007Q2

REPORT INFORMATION
  Report Type: 
  Country: None (occurrence: None)
  Receive Date: 20070605
  Receipt Date: 20070523
  Transmission Date: 20071010
  Serious: Yes (Hospitalization)
  Sender: FDA-Public Use
  Company Number: US-AMGEN-US221295

PATIENT
  Sex: Female
  Weight: 65.8 kg

DRUGS (16)
  1. EPOGEN [Suspect]
     Indication: DIALYSIS
     Route: 042
     Dates: start: 20051221
  2. CALCIUM ACETATE [Concomitant]
  3. HEPARIN [Concomitant]
  4. METOPROLOL SUCCINATE [Concomitant]
     Dates: start: 20040201
  5. LISINOPRIL [Concomitant]
     Dates: start: 20040201
  6. MINOXIDIL [Concomitant]
  7. PROTONIX [Concomitant]
  8. NORVASC [Concomitant]
     Dates: start: 19990801
  9. TYLENOL [Concomitant]
  10. INSULIN [Concomitant]
  11. ZOFRAN [Concomitant]
  12. LEVAQUIN [Concomitant]
  13. DUONEB [Concomitant]
  14. ZOLPIDEM [Concomitant]
  15. PHOSLO [Concomitant]
     Dates: start: 20060601
  16. QUININE SULFATE [Concomitant]
     Dates: start: 20061201

REACTIONS (6)
  - ARTERIOVENOUS FISTULA [None]
  - ARTERIOVENOUS FISTULA OPERATION [None]
  - ENTEROBACTER SEPSIS [None]
  - HYPOTHYROIDISM [None]
  - REFRACTORY ANAEMIA [None]
  - STAPHYLOCOCCAL SEPSIS [None]
